FAERS Safety Report 9082726 (Version 1)
Quarter: 2013Q1

REPORT INFORMATION
  Report Type: Report from Study
  Country: US (occurrence: US)
  Receive Date: 20130130
  Receipt Date: 20130130
  Transmission Date: 20140127
  Serious: No
  Sender: FDA-Public Use
  Company Number: US-ABBOTT-12P-163-0938112-00

PATIENT
  Age: 55 Year
  Sex: Female

DRUGS (8)
  1. HUMIRA 40 MG/0.8 ML PEN [Suspect]
     Indication: CROHN^S DISEASE
     Dosage: LOADING DOSE
     Dates: start: 20120515, end: 20120515
  2. HUMIRA 40 MG/0.8 ML PEN [Suspect]
  3. ZOLOFT [Concomitant]
     Indication: DEPRESSION
     Dosage: 200MG EVERY DAY
  4. XANAX [Concomitant]
     Indication: PANIC ATTACK
  5. XANAX [Concomitant]
     Indication: ANXIETY
  6. TRAMADOL [Concomitant]
     Indication: ABDOMINAL PAIN
  7. TRAMADOL [Concomitant]
     Indication: CROHN^S DISEASE
  8. TRAMADOL [Concomitant]
     Indication: BACK PAIN

REACTIONS (8)
  - Injection site pain [Not Recovered/Not Resolved]
  - Injection site pain [Not Recovered/Not Resolved]
  - Injection site bruising [Not Recovered/Not Resolved]
  - Increased tendency to bruise [Unknown]
  - Fatigue [Recovering/Resolving]
  - Abdominal discomfort [Recovering/Resolving]
  - Injection site papule [Recovering/Resolving]
  - Injection site erythema [Recovering/Resolving]
